FAERS Safety Report 6042584-6 (Version None)
Quarter: 2009Q1

REPORT INFORMATION
  Report Type: 
  Country: None (occurrence: None)
  Receive Date: 20090119
  Receipt Date: 20090116
  Transmission Date: 20090719
  Serious: Yes (Life-Threatening, Hospitalization, Other)
  Sender: FDA-Public Use
  Company Number: GB-JNJFOC-20081201768

PATIENT
  Sex: Male

DRUGS (3)
  1. CONCERTA [Suspect]
     Indication: ATTENTION DEFICIT/HYPERACTIVITY DISORDER
     Dosage: 36 AND 18 MG DOSES
     Route: 048
  2. RISPERDAL [Suspect]
     Indication: ANXIETY
     Route: 048
  3. MELATONIN [Concomitant]

REACTIONS (1)
  - T-CELL LYMPHOMA [None]
